FAERS Safety Report 8549447-2 (Version None)
Quarter: 2012Q2

REPORT INFORMATION
  Report Type: 
  Country: None (occurrence: None)
  Receive Date: 20120416
  Receipt Date: 20101013
  Transmission Date: 20120825
  Serious: Yes (Other)
  Sender: FDA-Public Use
  Company Number: PHHY2010US62659

PATIENT
  Age: 71 Year
  Sex: Female

DRUGS (5)
  1. TRAMADOL HCL [Concomitant]
  2. NEXIUM [Concomitant]
  3. DIOVAN [Suspect]
     Indication: HYPERTENSION
     Dosage: 160 MG DAILY, ORAL
     Route: 048
     Dates: start: 20100425
  4. BYSTOLIC [Concomitant]
  5. SUCRALFATE [Concomitant]

REACTIONS (8)
  - HEADACHE [None]
  - FATIGUE [None]
  - HYPOTENSION [None]
  - BLOOD PRESSURE DECREASED [None]
  - ABDOMINAL PAIN UPPER [None]
  - DIZZINESS [None]
  - INFLUENZA [None]
  - FEELING ABNORMAL [None]
